FAERS Safety Report 7367653-X (Version None)
Quarter: 2011Q1

REPORT INFORMATION
  Report Type: 
  Country: None (occurrence: None)
  Receive Date: 20110322
  Receipt Date: 20110317
  Transmission Date: 20110831
  Serious: Yes (Hospitalization)
  Sender: FDA-Public Use
  Company Number: FR-PFIZER INC-2011059755

PATIENT
  Sex: Male

DRUGS (3)
  1. DOXORUBICIN HCL [Suspect]
     Indication: PROSTATE CANCER
     Dosage: 20 MG/M2, 1X/DAY OVER 3 DAYS, RENEWED EVERY 3 WEEKS
     Dates: start: 20080601
  2. IFOSFAMIDE [Suspect]
     Indication: PROSTATE CANCER
     Dosage: 1-1.5 MG/M2, 1X/DAY OVER 3 DAYS. EVERY 3 WEEKS
     Dates: start: 20080601
  3. UROMITEXAN [Suspect]
     Indication: PROSTATE CANCER
     Dosage: OVER 3 DAYS, EVERY 3 WEEKS
     Dates: start: 20080601

REACTIONS (3)
  - FEBRILE BONE MARROW APLASIA [None]
  - NEUTROPENIA [None]
  - CELLULITIS [None]
